FAERS Safety Report 18083026 (Version 1)
Quarter: 2020Q3

REPORT INFORMATION
  Report Type: Spontaneous
  Country: US (occurrence: US)
  Receive Date: 20200728
  Receipt Date: 20200728
  Transmission Date: 20201103
  Serious: No
  Sender: FDA-Public Use
  Company Number: US-PERRIGO-19US014807

PATIENT
  Age: 49 Year
  Sex: Male
  Weight: 90.7 kg

DRUGS (3)
  1. FISH OIL [Concomitant]
     Active Substance: FISH OIL
     Dosage: 2400 MG
     Route: 065
     Dates: start: 201910
  2. FISH OIL [Concomitant]
     Active Substance: FISH OIL
     Indication: ALOPECIA
     Dosage: 4800 MG
     Route: 065
     Dates: start: 20170401, end: 201910
  3. MINOXIDIL. [Suspect]
     Active Substance: MINOXIDIL
     Indication: ALOPECIA
     Dosage: .5 ML, BID
     Route: 061
     Dates: start: 201908, end: 201910

REACTIONS (4)
  - Underdose [Recovered/Resolved]
  - Drug ineffective [Unknown]
  - Product administered at inappropriate site [Recovered/Resolved]
  - Application site coldness [Recovering/Resolving]

NARRATIVE: CASE EVENT DATE: 201908
